FAERS Safety Report 7559425-8 (Version None)
Quarter: 2011Q2

REPORT INFORMATION
  Report Type: 
  Country: None (occurrence: None)
  Receive Date: 20110621
  Receipt Date: 20110616
  Transmission Date: 20111010
  Serious: Yes (Death)
  Sender: FDA-Public Use
  Company Number: US-AMGEN-USASP2011031137

PATIENT
  Age: 57 Year
  Sex: Female

DRUGS (4)
  1. CORTICOSTEROIDS [Concomitant]
  2. IVIGLOB-EX [Concomitant]
  3. NPLATE [Suspect]
     Indication: PRODUCT USED FOR UNKNOWN INDICATION
     Dosage: 26 A?G, UNK
     Dates: start: 20091211, end: 20100703
  4. RITUXIMAB [Concomitant]

REACTIONS (1)
  - CHRONIC LYMPHOCYTIC LEUKAEMIA [None]
